FAERS Safety Report 5240137-0 (Version None)
Quarter: 2007Q1

REPORT INFORMATION
  Report Type: 
  Country: None (occurrence: None)
  Receive Date: 20070216
  Receipt Date: 20070206
  Transmission Date: 20070707
  Serious: Yes (Other)
  Sender: FDA-Public Use
  Company Number: FR-PFIZER INC-2007011012

PATIENT
  Age: 75 Year
  Sex: Male

DRUGS (6)
  1. LYRICA [Suspect]
     Indication: SCIATICA
     Dosage: DAILY DOSE:125MG
     Dates: start: 20061101, end: 20070101
  2. ANALGESICS [Concomitant]
  3. TENORMIN [Concomitant]
     Dosage: DAILY DOSE:100MG
  4. KARDEGIC [Concomitant]
  5. PRAVASTATIN [Concomitant]
  6. ALL OTHER THERAPEUTIC PRODUCTS [Concomitant]

REACTIONS (1)
  - VENTRICULAR EXTRASYSTOLES [None]
